FAERS Safety Report 7639216-X (Version None)
Quarter: 2011Q3

REPORT INFORMATION
  Report Type: 
  Country: None (occurrence: None)
  Receive Date: 20110725
  Receipt Date: 20110725
  Transmission Date: 20111222
  Serious: Yes (Hospitalization)
  Sender: FDA-Public Use
  Company Number: None

PATIENT
  Sex: Male
  Weight: 24.3 kg

DRUGS (4)
  1. CYCLOPHOSPHAMIDE [Suspect]
     Dosage: 5580MG
  2. G-CSF (FILGRASTIM, AMGEN) [Suspect]
     Dosage: 390MCG
  3. MESNA [Suspect]
     Dosage: 3348MG
  4. THIOTEPA [Suspect]
     Dosage: 837MG

REACTIONS (4)
  - CSF PROTEIN INCREASED [None]
  - GUILLAIN-BARRE SYNDROME [None]
  - WEIGHT BEARING DIFFICULTY [None]
  - ARTHROPATHY [None]
